FAERS Safety Report 5786567-X (Version None)
Quarter: 2008Q2

REPORT INFORMATION
  Report Type: 
  Country: None (occurrence: None)
  Receive Date: 20080624
  Receipt Date: 20070730
  Transmission Date: 20081010
  Serious: No
  Sender: FDA-Public Use
  Company Number: US-ASTRAZENECA-2007UW18242

PATIENT
  Age: 78 Year
  Sex: Male
  Weight: 90.7 kg

DRUGS (4)
  1. PULMICORT FLEXHALER [Suspect]
     Indication: EMPHYSEMA
     Dosage: 180 UG - 2 INHALATIONS BID
     Route: 055
     Dates: start: 20070701
  2. PULMICORT FLEXHALER [Suspect]
     Indication: BRONCHITIS
     Dosage: 180 UG - 2 INHALATIONS BID
     Route: 055
     Dates: start: 20070701
  3. THYROID TAB [Concomitant]
  4. OMEPRAZOLE [Concomitant]
     Route: 048

REACTIONS (2)
  - COUGH [None]
  - INCREASED UPPER AIRWAY SECRETION [None]
